FAERS Safety Report 9735148 (Version 1)
Quarter: 2013Q4

REPORT INFORMATION
  Report Type: Spontaneous
  Country: IT (occurrence: None)
  Receive Date: 20131204
  Receipt Date: 20131204
  Transmission Date: 20140711
  Serious: Yes (Other)
  Sender: FDA-Public Use
  Company Number: 2038534

PATIENT
  Sex: Female

DRUGS (2)
  1. EPIRUBICIN HYDROCHLORIDE [Suspect]
     Indication: PRODUCT USED FOR UNKNOWN INDICATION
     Dosage: UNKNOWN, UNKNOWN, UNKNOWN
  2. FLUOROURACIL [Suspect]
     Dosage: UNKNOWN, UNKNOWN, UNKNOWN

REACTIONS (3)
  - Skin burning sensation [None]
  - Anaemia [None]
  - Neutropenia [None]
